FAERS Safety Report 5254629-1 (Version None)
Quarter: 2007Q1

REPORT INFORMATION
  Report Type: 
  Country: None (occurrence: None)
  Receive Date: 20070302
  Receipt Date: 20070220
  Transmission Date: 20070707
  Serious: Yes (Other)
  Sender: FDA-Public Use
  Company Number: NL-PFIZER INC-2007014759

PATIENT
  Sex: Female
  Weight: 54 kg

DRUGS (4)
  1. LYRICA [Suspect]
     Indication: NEURALGIA
     Dosage: DAILY DOSE:225MG
     Route: 048
     Dates: start: 20070122, end: 20070218
  2. LORAZEPAM [Concomitant]
  3. TRAMADOL HCL [Concomitant]
     Dates: start: 20020101
  4. MORPHINE [Concomitant]
     Route: 061

REACTIONS (4)
  - BONE PAIN [None]
  - DIARRHOEA [None]
  - DIZZINESS [None]
  - PYREXIA [None]
